FAERS Safety Report 8577539-0 (Version None)
Quarter: 2012Q3

REPORT INFORMATION
  Report Type: 
  Country: None (occurrence: None)
  Receive Date: 20120807
  Receipt Date: 20120730
  Transmission Date: 20120928
  Serious: Yes (Life-Threatening, Hospitalization, Other)
  Sender: FDA-Public Use
  Company Number: DE-ROCHE-1095700

PATIENT
  Sex: Male
  Weight: 120.9 kg

DRUGS (1)
  1. MIRCERA [Suspect]
     Indication: NEPHROGENIC ANAEMIA
     Dosage: LAST DOSE PRIOR TO SAE: 31/JAN/2012
     Route: 058
     Dates: start: 20110913

REACTIONS (4)
  - DIABETIC FOOT [None]
  - ABSCESS [None]
  - ARTERIOSCLEROSIS MOENCKEBERG-TYPE [None]
  - PERIPHERAL ARTERIAL OCCLUSIVE DISEASE [None]
